FAERS Safety Report 11736065 (Version 1)
Quarter: 2015Q4

REPORT INFORMATION
  Report Type: Spontaneous
  Country: US (occurrence: None)
  Receive Date: 20151112
  Receipt Date: 20151112
  Transmission Date: 20160304
  Serious: Yes (Disabling)
  Sender: FDA-Public Use
  Company Number: None

PATIENT
  Age: 37 Year
  Sex: Female
  Weight: 60.78 kg

DRUGS (13)
  1. CYMBALTA [Suspect]
     Active Substance: DULOXETINE HYDROCHLORIDE
     Indication: MAJOR DEPRESSION
     Dosage: 1 PILL EACH MORNING
     Route: 048
     Dates: start: 20151104, end: 20151107
  2. BENEFIBER [Concomitant]
     Active Substance: STARCH, WHEAT
  3. EFFEXOR XR [Concomitant]
     Active Substance: VENLAFAXINE HYDROCHLORIDE
  4. NASACORT [Concomitant]
     Active Substance: TRIAMCINOLONE ACETONIDE
  5. LORATADINE. [Concomitant]
     Active Substance: LORATADINE
  6. VITAMIN D3 [Concomitant]
     Active Substance: CHOLECALCIFEROL
  7. CYMBALTA [Suspect]
     Active Substance: DULOXETINE HYDROCHLORIDE
     Indication: GENERALISED ANXIETY DISORDER
     Dosage: 1 PILL EACH MORNING
     Route: 048
     Dates: start: 20151104, end: 20151107
  8. PRISTIQ EXTENDED RELEASE [Concomitant]
     Active Substance: DESVENLAFAXINE SUCCINATE
  9. MIRALAX [Concomitant]
     Active Substance: POLYETHYLENE GLYCOL 3350
  10. FIBER CHOICE CHEWABLES [Concomitant]
  11. AYURVEDIC ^TRIPHALA^ TEAL [Concomitant]
  12. FISH OIL [Concomitant]
     Active Substance: FISH OIL
  13. CENTRUM VITAMIN [Concomitant]

REACTIONS (2)
  - Constipation [None]
  - Drug ineffective [None]

NARRATIVE: CASE EVENT DATE: 20151106
